FAERS Safety Report 7522293-4 (Version None)
Quarter: 2011Q2

REPORT INFORMATION
  Report Type: 
  Country: None (occurrence: None)
  Receive Date: 20110512
  Receipt Date: 20110502
  Transmission Date: 20111010
  Serious: Yes (Hospitalization)
  Sender: FDA-Public Use
  Company Number: 2011028412

PATIENT
  Age: 7 Year
  Sex: Male
  Weight: 33.5662 kg

DRUGS (13)
  1. PREDNISONE [Concomitant]
  2. XOPENEX (LEVODALBUTAMOL) [Concomitant]
  3. IBUPROFEN (IBUPROFEM) [Concomitant]
  4. HIZENTRA [Suspect]
     Indication: BRONCHIECTASIS
     Dosage: (4 G 1X/WEEK, 20 ML VIA 2 SITES OVER 1 HR 20MIN SUBCUTANEOUS), (SUBCUTANOUS)
     Route: 058
     Dates: start: 20101112
  5. HIZENTRA [Suspect]
     Indication: IMMUNODEFICIENCY
     Dosage: (4 G 1X/WEEK, 20 ML VIA 2 SITES OVER 1 HR 20MIN SUBCUTANEOUS), (SUBCUTANOUS)
     Route: 058
     Dates: start: 20101112
  6. HIZENTRA [Suspect]
     Indication: BRONCHIECTASIS
     Dosage: (4 G 1X/WEEK, 20 ML VIA 2 SITES OVER 1 HR 20MIN SUBCUTANEOUS), (SUBCUTANOUS)
     Route: 058
     Dates: start: 20110429
  7. HIZENTRA [Suspect]
     Indication: IMMUNODEFICIENCY
     Dosage: (4 G 1X/WEEK, 20 ML VIA 2 SITES OVER 1 HR 20MIN SUBCUTANEOUS), (SUBCUTANOUS)
     Route: 058
     Dates: start: 20110429
  8. SINGULAIR [Concomitant]
  9. ACETAMINOPHEN [Concomitant]
  10. FLOVENT HFA (FLUTICASONE PROPIONATE) [Concomitant]
  11. ALBUTEROL SULFA HFA (SALBUTAMOL SULFATE) [Concomitant]
  12. HYPER-SAL (SODIUM CHLORIDE) [Concomitant]
  13. SULFAMETHOXAZOLE-TMP SUSPENSION (SULFAMETHOXAZOLE) [Concomitant]

REACTIONS (4)
  - PYREXIA [None]
  - WHEEZING [None]
  - PNEUMONIA [None]
  - COUGH [None]
